FAERS Safety Report 16623097 (Version 1)
Quarter: 2019Q3

REPORT INFORMATION
  Report Type: Spontaneous
  Country: PL (occurrence: PL)
  Receive Date: 20190723
  Receipt Date: 20190723
  Transmission Date: 20191004
  Serious: Yes (Hospitalization)
  Sender: FDA-Public Use
  Company Number: PL-TEVA-2019-PL-1081079

PATIENT
  Age: 74 Year
  Sex: Male
  Weight: 78 kg

DRUGS (2)
  1. ETOPOSIDE. [Suspect]
     Active Substance: ETOPOSIDE
     Indication: MALIGNANT RESPIRATORY TRACT NEOPLASM
     Dosage: 190 MILLIGRAM
     Route: 042
     Dates: start: 20151216, end: 20151218
  2. CARBOPLATIN. [Suspect]
     Active Substance: CARBOPLATIN
     Indication: MALIGNANT RESPIRATORY TRACT NEOPLASM
     Dosage: 525 MILLIGRAM
     Route: 042
     Dates: start: 20151216, end: 20151216

REACTIONS (9)
  - Pyrexia [Recovering/Resolving]
  - Neutrophil count decreased [Recovering/Resolving]
  - Asthenia [Recovering/Resolving]
  - Haemoglobin decreased [Recovering/Resolving]
  - C-reactive protein increased [Recovering/Resolving]
  - Dizziness [Recovering/Resolving]
  - Procalcitonin decreased [Recovering/Resolving]
  - Dyspepsia [Recovering/Resolving]
  - Dyspepsia [Recovering/Resolving]

NARRATIVE: CASE EVENT DATE: 20151223
